FAERS Safety Report 21961788 (Version 2)
Quarter: 2023Q1

REPORT INFORMATION
  Report Type: Spontaneous
  Country: JP (occurrence: JP)
  Receive Date: 20230207
  Receipt Date: 20230323
  Transmission Date: 20230417
  Serious: Yes (Hospitalization, Other)
  Sender: FDA-Public Use
  Company Number: JP-BRISTOL-MYERS SQUIBB COMPANY-2022-139233

PATIENT
  Age: 90 Year
  Sex: Male
  Weight: 58 kg

DRUGS (7)
  1. ELIQUIS [Suspect]
     Active Substance: APIXABAN
     Indication: Cerebrovascular accident prophylaxis
     Route: 048
     Dates: start: 20221010
  2. LANSOPRAZOLE [Concomitant]
     Active Substance: LANSOPRAZOLE
     Indication: Gastrooesophageal reflux disease
     Route: 048
  3. MAGNESIUM [Concomitant]
     Active Substance: MAGNESIUM
     Indication: Constipation
     Route: 048
  4. BICALUTAMIDE [Concomitant]
     Active Substance: BICALUTAMIDE
     Indication: Prostate cancer
     Route: 048
  5. FLAVOXATE HYDROCHLORIDE [Concomitant]
     Active Substance: FLAVOXATE HYDROCHLORIDE
     Indication: Prostate cancer
     Route: 048
  6. EDARAVONE [Concomitant]
     Active Substance: EDARAVONE
     Indication: Cerebral infarction
     Route: 042
     Dates: start: 20221018
  7. FRUCTOSE\GLYCERIN [Concomitant]
     Active Substance: FRUCTOSE\GLYCERIN
     Indication: Cerebral infarction
     Route: 042
     Dates: start: 20221018

REACTIONS (6)
  - Haemorrhagic cerebral infarction [Recovering/Resolving]
  - Epilepsy [Unknown]
  - COVID-19 pneumonia [Recovered/Resolved]
  - Loss of personal independence in daily activities [Unknown]
  - Altered state of consciousness [Unknown]
  - Dysphagia [Unknown]

NARRATIVE: CASE EVENT DATE: 20221028
